FAERS Safety Report 9678983 (Version 1)
Quarter: 2013Q4

REPORT INFORMATION
  Report Type: Spontaneous
  Country: DE (occurrence: DE)
  Receive Date: 20131108
  Receipt Date: 20131108
  Transmission Date: 20140711
  Serious: Yes (Other)
  Sender: FDA-Public Use
  Company Number: DE-ASTRAZENECA-2013SE80813

PATIENT
  Sex: Female

DRUGS (7)
  1. LISINOPRIL [Suspect]
     Indication: HYPERTENSION
     Route: 048
  2. JAKAVI [Suspect]
     Indication: THROMBOCYTOSIS
     Route: 048
     Dates: start: 20120728, end: 20130415
  3. JAKAVI [Suspect]
     Indication: THROMBOCYTOSIS
     Route: 048
     Dates: start: 201304, end: 20130514
  4. JAKAVI [Suspect]
     Indication: THROMBOCYTOSIS
     Dosage: HALF TABLET (7.5 MG) DAILY
     Route: 048
     Dates: start: 20130523, end: 20130604
  5. JAKAVI [Suspect]
     Indication: THROMBOCYTOSIS
     Route: 048
     Dates: start: 20130605
  6. BISOPROLOL [Suspect]
     Indication: HYPERTENSION
     Route: 065
  7. LEVOTHYROXINE [Concomitant]

REACTIONS (9)
  - Hypertensive crisis [Recovering/Resolving]
  - Hypertension [Unknown]
  - Vitiligo [Not Recovered/Not Resolved]
  - Platelet count increased [Unknown]
  - Exercise tolerance decreased [Recovering/Resolving]
  - Blood pressure increased [Recovering/Resolving]
  - Asthenia [Recovering/Resolving]
  - Dizziness [Recovering/Resolving]
  - Palpitations [Recovering/Resolving]
